FAERS Safety Report 5845171-5 (Version None)
Quarter: 2008Q3

REPORT INFORMATION
  Report Type: 
  Country: None (occurrence: None)
  Receive Date: 20080814
  Receipt Date: 20080808
  Transmission Date: 20090109
  Serious: Yes (Life-Threatening, Hospitalization)
  Sender: FDA-Public Use
  Company Number: PHHY2008CH17293

PATIENT
  Age: 70 Year
  Sex: Male

DRUGS (5)
  1. SANDIMMUNE [Suspect]
     Indication: HEART TRANSPLANT
     Dosage: 100 MG/DAY
  2. CELLCEPT [Suspect]
     Indication: HEART TRANSPLANT
     Dosage: 500 MG/DAY
  3. ZYVOXID [Suspect]
     Indication: LIVER ABSCESS
     Dosage: 600 MG/DAY
     Dates: end: 20070901
  4. CIPROXIN  /DEN/ [Suspect]
     Indication: LIVER ABSCESS
     Dosage: 250 MG/DAY
     Dates: start: 20070821
  5. PREDNISONE TAB [Concomitant]
     Indication: HEART TRANSPLANT
     Dosage: 15 MG/DAY

REACTIONS (4)
  - BICYTOPENIA [None]
  - LOSS OF CONSCIOUSNESS [None]
  - RENAL IMPAIRMENT [None]
  - SYNCOPE VASOVAGAL [None]
